FAERS Safety Report 5126305-7 (Version None)
Quarter: 2006Q3

REPORT INFORMATION
  Report Type: 
  Country: None (occurrence: None)
  Receive Date: 20060825
  Receipt Date: 20051202
  Transmission Date: 20061208
  Serious: No
  Sender: FDA-Public Use
  Company Number: 05P-163-0318455-00

PATIENT
  Age: 43 Year
  Sex: Female
  Weight: 63.5036 kg

DRUGS (2)
  1. SYNTHROID [Suspect]
     Indication: HYPOTHYROIDISM
     Dosage: 75 MCG, 1 IN 1 D, PER ORAL
     Route: 048
     Dates: start: 20051001, end: 20051129
  2. LIOTHYRONINE SODIUM [Concomitant]

REACTIONS (1)
  - CONVULSION [None]
